FAERS Safety Report 6758916-7 (Version None)
Quarter: 2010Q2

REPORT INFORMATION
  Report Type: 
  Country: None (occurrence: None)
  Receive Date: 20100607
  Receipt Date: 20100531
  Transmission Date: 20101027
  Serious: Yes (Other)
  Sender: FDA-Public Use
  Company Number: PHHY2010BR35582

PATIENT
  Sex: Male

DRUGS (1)
  1. FORADIL [Suspect]

REACTIONS (4)
  - ACCIDENT [None]
  - BEDRIDDEN [None]
  - LOWER LIMB FRACTURE [None]
  - TREATMENT NONCOMPLIANCE [None]
